FAERS Safety Report 6987264-5 (Version None)
Quarter: 2010Q3

REPORT INFORMATION
  Report Type: 
  Country: None (occurrence: None)
  Receive Date: 20100916
  Receipt Date: 20100908
  Transmission Date: 20110219
  Serious: Yes (Death, Other)
  Sender: FDA-Public Use
  Company Number: DE-BAYER-201039109GPV

PATIENT
  Sex: Male

DRUGS (7)
  1. PREDNISONE [Suspect]
     Indication: HODGKIN'S DISEASE
     Dosage: ON DAYS 1 TO 15
     Route: 048
  2. PREDNISONE [Suspect]
     Dosage: ON DAYS 1 TO 15
     Route: 048
  3. DACARBAZINE [Suspect]
     Indication: HODGKIN'S DISEASE
     Dosage: ON DAYS 1 TO 3
     Route: 042
  4. VINCRISTINE [Suspect]
     Indication: HODGKIN'S DISEASE
     Dosage: ON DAYS 1 AND 8
     Route: 042
  5. VINCRISTINE [Suspect]
     Dosage: ON DAYS 1; 8 AND 15
     Route: 042
  6. CYCLOPHOSPHAMIDE [Suspect]
     Indication: HODGKIN'S DISEASE
     Dosage: ON DAYS 1 AND 8
     Route: 042
  7. DOXORUBICIN HCL [Concomitant]
     Indication: HODGKIN'S DISEASE
     Dosage: ON DAYS 1 AND 15
     Route: 042

REACTIONS (2)
  - ANAPHYLACTIC SHOCK [None]
  - RENAL FAILURE [None]
